FAERS Safety Report 6405050-1 (Version None)
Quarter: 2009Q4

REPORT INFORMATION
  Report Type: 
  Country: None (occurrence: None)
  Receive Date: 20091019
  Receipt Date: 20091007
  Transmission Date: 20100525
  Serious: Yes (Life-Threatening, Hospitalization)
  Sender: FDA-Public Use
  Company Number: FR-PFIZER INC-2009279319

PATIENT
  Age: 65 Year

DRUGS (14)
  1. SOLU-MEDROL [Suspect]
     Indication: PREMEDICATION
     Dosage: 500 MG TO 1 G
     Route: 040
     Dates: start: 20090415, end: 20090415
  2. MABTHERA [Suspect]
     Indication: RHEUMATOID ARTHRITIS
     Dosage: 1 G, 1X/DAY
     Dates: start: 20090415, end: 20090415
  3. MABTHERA [Suspect]
     Dosage: 1 G, 1X/DAY
     Dates: start: 20090730, end: 20090730
  4. SERESTA [Concomitant]
     Dosage: 20 MG, 3X/DAY
  5. OLMETEC [Concomitant]
     Dosage: 40 MG, 1X/DAY
  6. STILNOX [Concomitant]
     Dosage: 10 MG, 1X/DAY
  7. NEXIUM [Concomitant]
     Dosage: 40 MG, 1X/DAY
  8. CORTANCYL [Concomitant]
     Dosage: 10 MG, 1X/DAY
  9. METHOTREXATE [Concomitant]
     Dosage: 15 MG, WEEKLY
  10. THERALENE [Concomitant]
     Dosage: 20 GTT, 1X/DAY
  11. TRAMADOL HYDROCHLORIDE AND ACETAMINOPHEN [Concomitant]
     Dosage: UNK
  12. LOPRESSOR [Concomitant]
     Dosage: 200 MG, 1X/DAY
  13. PREVISCAN [Concomitant]
  14. LAROXYL [Concomitant]
     Dosage: 40 GTT, 1X/DAY

REACTIONS (1)
  - SUICIDE ATTEMPT [None]
